FAERS Safety Report 18176202 (Version 5)
Quarter: 2020Q4

REPORT INFORMATION
  Report Type: Report from Study
  Country: US (occurrence: US)
  Receive Date: 20200820
  Receipt Date: 20201210
  Transmission Date: 20210113
  Serious: Yes (Other)
  Sender: FDA-Public Use
  Company Number: NVSC2020US226691

PATIENT
  Age: 83 Year
  Sex: Female

DRUGS (3)
  1. ENTRESTO [Suspect]
     Active Substance: SACUBITRIL\VALSARTAN
     Indication: CARDIAC FAILURE CHRONIC
     Dosage: 50 MG, BID (24/26MG)
     Route: 048
     Dates: start: 20200601
  2. ENTRESTO [Suspect]
     Active Substance: SACUBITRIL\VALSARTAN
     Dosage: 100 MG (49/51 MG), UNKNOWN
     Route: 065
     Dates: start: 20201110
  3. ENTRESTO [Suspect]
     Active Substance: SACUBITRIL\VALSARTAN
     Dosage: 50 MG, BID (24/26MG)
     Route: 048
     Dates: start: 202006

REACTIONS (6)
  - Abnormal behaviour [Recovered/Resolved]
  - Fluid retention [Unknown]
  - Weight decreased [Recovering/Resolving]
  - Swelling [Recovering/Resolving]
  - Ejection fraction abnormal [Recovering/Resolving]
  - Blood glucose decreased [Recovered/Resolved]

NARRATIVE: CASE EVENT DATE: 202006
